FAERS Safety Report 6294959-8 (Version None)
Quarter: 2009Q3

REPORT INFORMATION
  Report Type: 
  Country: None (occurrence: None)
  Receive Date: 20090731
  Receipt Date: 20090731
  Transmission Date: 20100115
  Serious: Yes (Hospitalization)
  Sender: FDA-Public Use
  Company Number: None

PATIENT
  Age: 46 Year
  Sex: Female
  Weight: 92.9874 kg

DRUGS (1)
  1. NIASPAN [Suspect]
     Indication: BLOOD CHOLESTEROL INCREASED
     Dosage: 500MG NIGHTLY PO
     Route: 048
     Dates: start: 20090721, end: 20090727

REACTIONS (6)
  - BURNING SENSATION [None]
  - DIZZINESS POSTURAL [None]
  - FLUSHING [None]
  - NAUSEA [None]
  - PALPITATIONS [None]
  - SYNCOPE [None]
